FAERS Safety Report 16586169 (Version 1)
Quarter: 2019Q3

REPORT INFORMATION
  Report Type: Spontaneous
  Country: US (occurrence: US)
  Receive Date: 20190604
  Receipt Date: 20190604
  Transmission Date: 20191004
  Serious: No
  Sender: FDA-Public Use
  Company Number: None

PATIENT

DRUGS (2)
  1. VANCOMYCIN HCL [Suspect]
     Active Substance: VANCOMYCIN HYDROCHLORIDE
  2. VECURONIUM BROMIDE. [Suspect]
     Active Substance: VECURONIUM BROMIDE

REACTIONS (2)
  - Product preparation error [None]
  - Product name confusion [None]
